FAERS Safety Report 24874684 (Version 3)
Quarter: 2025Q4

REPORT INFORMATION
  Report Type: Spontaneous
  Country: JP (occurrence: JP)
  Receive Date: 20250122
  Receipt Date: 20251022
  Transmission Date: 20260118
  Serious: Yes (Death, Hospitalization, Other)
  Sender: PFIZER
  Company Number: JP-PFIZER INC-PV202500007705

PATIENT
  Age: 9 Decade
  Sex: Male

DRUGS (1)
  1. TAFAMIDIS [Suspect]
     Active Substance: TAFAMIDIS
     Indication: Cardiac amyloidosis
     Dosage: 61 MG, DAILY
     Route: 048
     Dates: start: 202303, end: 202309

REACTIONS (3)
  - Ventricular tachycardia [Fatal]
  - Oedema peripheral [Fatal]
  - Cardiac failure [Unknown]

NARRATIVE: CASE EVENT DATE: 20230601
